FAERS Safety Report 11307400 (Version 1)
Quarter: 2015Q3

REPORT INFORMATION
  Report Type: Spontaneous
  Country: US (occurrence: US)
  Receive Date: 20150723
  Receipt Date: 20150723
  Transmission Date: 20151125
  Serious: No
  Sender: FDA-Public Use
  Company Number: US-GLAXOSMITHKLINE-US2015GSK093964

PATIENT
  Age: 76 Year
  Sex: Female

DRUGS (2)
  1. TANZEUM [Suspect]
     Active Substance: ALBIGLUTIDE
     Indication: TYPE 2 DIABETES MELLITUS
     Dosage: 30 MG, WE
     Route: 058
     Dates: start: 20150623
  2. TANZEUM [Suspect]
     Active Substance: ALBIGLUTIDE
     Dosage: 30 MG, UNK
     Route: 058

REACTIONS (13)
  - Device use error [Unknown]
  - Decreased activity [Unknown]
  - Vomiting [Unknown]
  - Lip disorder [Unknown]
  - Glycosylated haemoglobin increased [Unknown]
  - Malaise [Unknown]
  - Dysgeusia [Unknown]
  - Asthenia [Unknown]
  - Blood glucose increased [Unknown]
  - Abdominal pain upper [Recovered/Resolved]
  - Decreased appetite [Unknown]
  - Accidental exposure to product [Unknown]
  - Intercepted drug administration error [Unknown]

NARRATIVE: CASE EVENT DATE: 20150702
